FAERS Safety Report 23232279 (Version 1)
Quarter: 2023Q4

REPORT INFORMATION
  Report Type: Report from Study
  Country: EG (occurrence: EG)
  Receive Date: 20231127
  Receipt Date: 20231127
  Transmission Date: 20240109
  Serious: Yes (Death, Hospitalization)
  Sender: FDA-Public Use
  Company Number: EG-ABBVIE-5515811

PATIENT
  Sex: Male

DRUGS (1)
  1. VENCLEXTA [Suspect]
     Active Substance: VENETOCLAX
     Indication: Neoplasm malignant
     Route: 048
     Dates: end: 20231118

REACTIONS (5)
  - Renal impairment [Fatal]
  - Alopecia [Unknown]
  - Lung disorder [Fatal]
  - Respiration abnormal [Fatal]
  - Mental disorder [Fatal]

NARRATIVE: CASE EVENT DATE: 20220101
